FAERS Safety Report 13648948 (Version 10)
Quarter: 2017Q4

REPORT INFORMATION
  Report Type: Report from Study
  Country: US (occurrence: US)
  Receive Date: 20170613
  Receipt Date: 20171109
  Transmission Date: 20180320
  Serious: Yes (Death, Hospitalization)
  Sender: FDA-Public Use
  Company Number: US-ACTELION-A-US2017-152691

PATIENT
  Age: 33 Year
  Sex: Female
  Weight: 57.6 kg

DRUGS (4)
  1. VELETRI [Suspect]
     Active Substance: EPOPROSTENOL
     Dosage: 20 NG/KG, PER MIN
     Route: 042
  2. ADCIRCA [Concomitant]
     Active Substance: TADALAFIL
  3. LETAIRIS [Concomitant]
     Active Substance: AMBRISENTAN
  4. VELETRI [Suspect]
     Active Substance: EPOPROSTENOL
     Indication: PULMONARY HYPERTENSION
     Dosage: 11 NG/KG, PER MIN
     Route: 042

REACTIONS (13)
  - Hypotension [Unknown]
  - Respiratory failure [Unknown]
  - Pain [Unknown]
  - Fluid overload [Unknown]
  - Pain in jaw [Unknown]
  - Lung disorder [Unknown]
  - Pneumonia [Unknown]
  - Seizure [Unknown]
  - Blood glucose decreased [Unknown]
  - Death [Fatal]
  - Dyspnoea [Unknown]
  - Sepsis [Unknown]
  - Headache [Unknown]

NARRATIVE: CASE EVENT DATE: 20171024
